FAERS Safety Report 5078583-0 (Version None)
Quarter: 2006Q3

REPORT INFORMATION
  Report Type: 
  Country: None (occurrence: None)
  Receive Date: 20060810
  Receipt Date: 20060810
  Transmission Date: 20061208
  Serious: No
  Sender: FDA-Public Use
  Company Number: None

PATIENT
  Age: 72 Year
  Sex: Female
  Weight: 69.8539 kg

DRUGS (3)
  1. ALLOPURINOL [Suspect]
     Indication: GOUT
     Dosage: 300 MG PO QD
     Route: 048
     Dates: start: 20060601
  2. LOTREL [Concomitant]
  3. HYDROCHLOROTHIAZIDE [Concomitant]

REACTIONS (3)
  - ANAEMIA [None]
  - GRANULOCYTOPENIA [None]
  - LEUKOPENIA [None]
